FAERS Safety Report 9467551 (Version 1)
Quarter: 2013Q3

REPORT INFORMATION
  Report Type: Spontaneous
  Country: US (occurrence: None)
  Receive Date: 20130819
  Receipt Date: 20130819
  Transmission Date: 20140515
  Serious: Yes (Death)
  Sender: FDA-Public Use
  Company Number: None

PATIENT
  Sex: Male

DRUGS (1)
  1. STIVARGA [Suspect]
     Dosage: 160 MG FOR 21 D ON, 7 OFF  DAILY 21D, 7OFF  PO
     Route: 048
     Dates: start: 20130507

REACTIONS (1)
  - Death [None]
